FAERS Safety Report 5379014-3 (Version None)
Quarter: 2007Q3

REPORT INFORMATION
  Report Type: 
  Country: None (occurrence: None)
  Receive Date: 20070705
  Receipt Date: 20070628
  Transmission Date: 20080115
  Serious: Yes (Disabling)
  Sender: FDA-Public Use
  Company Number: JP-BRISTOL-MYERS SQUIBB COMPANY-13826128

PATIENT
  Age: 21 Year
  Sex: Male

DRUGS (10)
  1. CYCLOPHOSPHAMIDE [Suspect]
     Indication: ACUTE LYMPHOCYTIC LEUKAEMIA
     Route: 041
     Dates: start: 20011004, end: 20011004
  2. LASTET [Suspect]
     Indication: ACUTE LYMPHOCYTIC LEUKAEMIA
     Route: 041
     Dates: start: 20011020, end: 20011020
  3. METHOTREXATE [Suspect]
     Indication: ACUTE LYMPHOCYTIC LEUKAEMIA
     Route: 041
     Dates: start: 20010919, end: 20010919
  4. CYLOCIDE [Suspect]
     Indication: ACUTE LYMPHOCYTIC LEUKAEMIA
     Dates: start: 20011020, end: 20011020
  5. LEUKERIN [Suspect]
     Indication: ACUTE LYMPHOCYTIC LEUKAEMIA
     Route: 048
     Dates: start: 20011020, end: 20011020
  6. DAUNOMYCIN [Suspect]
     Indication: ACUTE LYMPHOCYTIC LEUKAEMIA
     Route: 041
     Dates: start: 20010727, end: 20010727
  7. ONCOVIN [Suspect]
     Indication: ACUTE LYMPHOCYTIC LEUKAEMIA
     Route: 041
     Dates: start: 20011004, end: 20011004
  8. LEUNASE [Suspect]
     Indication: ACUTE LYMPHOCYTIC LEUKAEMIA
     Route: 041
     Dates: start: 20010820, end: 20010820
  9. ADRIAMYCIN PFS [Suspect]
     Indication: ACUTE LYMPHOCYTIC LEUKAEMIA
     Route: 041
     Dates: start: 20011004, end: 20011004
  10. PREDONINE [Concomitant]
     Dates: start: 20010725, end: 20011020

REACTIONS (1)
  - AZOOSPERMIA [None]
